FAERS Safety Report 8300180-1 (Version None)
Quarter: 2012Q2

REPORT INFORMATION
  Report Type: 
  Country: None (occurrence: None)
  Receive Date: 20120417
  Receipt Date: 20120403
  Transmission Date: 20120825
  Serious: Yes (Hospitalization)
  Sender: FDA-Public Use
  Company Number: 2012-00594

PATIENT
  Age: 65 Year
  Sex: Female

DRUGS (9)
  1. PARACETAMOL [Concomitant]
  2. OMEPRAZOLE [Concomitant]
  3. MORPHINE [Suspect]
     Indication: PAIN
     Dosage: 10 MG (5 MG, 2 IN 1 D), ORAL
     Route: 048
     Dates: start: 20120304, end: 20120308
  4. CITALOPRAM HYDROBROMIDE [Concomitant]
  5. LOSARTAN POTASSIUM [Suspect]
     Indication: PRODUCT USED FOR UNKNOWN INDICATION
     Dosage: UNKNOWN (UNKNOWN, UNK), ORAL
     Route: 048
     Dates: end: 20120308
  6. DICLOFENAC SODIUM [Suspect]
     Indication: PRODUCT USED FOR UNKNOWN INDICATION
     Dosage: 150 MG (50 MG, 3 IN 1 D), ORAL
     Route: 048
     Dates: end: 20120308
  7. METOLAZONE [Suspect]
     Indication: PRODUCT USED FOR UNKNOWN INDICATION
     Dosage: UNKNOWN (UNKNOWN, UNK), ORAL
     Route: 048
     Dates: end: 20120308
  8. PREGABALIN [Concomitant]
  9. ALBUTEROL [Concomitant]

REACTIONS (5)
  - DEHYDRATION [None]
  - SOMNOLENCE [None]
  - TOXICITY TO VARIOUS AGENTS [None]
  - RENAL FAILURE ACUTE [None]
  - CONFUSIONAL STATE [None]
